FAERS Safety Report 4806735-0 (Version None)
Quarter: 2005Q4

REPORT INFORMATION
  Report Type: 
  Country: None (occurrence: None)
  Receive Date: 20051019
  Receipt Date: 20050930
  Transmission Date: 20060501
  Serious: Yes (Hospitalization)
  Sender: FDA-Public Use
  Company Number: 6017604

PATIENT
  Age: 84 Year
  Sex: Female

DRUGS (6)
  1. METFORMINE [Suspect]
     Indication: DIABETES MELLITUS
     Dosage: 1700 MG (850 MG, 2 IN 1 D), ORAL
     Route: 048
     Dates: start: 20050426
  2. NOOTROPYL (PIRACETAM) [Suspect]
     Dosage: 3 DOSAGE FORMS (1 DOSAGE , 1 D), ORAL
     Route: 048
     Dates: start: 20050420
  3. ARICEPT [Suspect]
     Indication: DEMENTIA ALZHEIMER'S TYPE
     Dosage: 1 DOSAGE FORMS (1 DOSAGE FORMS, 1 1IN 1 D), ORAL
     Route: 048
     Dates: start: 20050420
  4. FENOFIBRATE [Concomitant]
  5. OROCAL D3 (BUCCAL TABLET) [Concomitant]
  6. FOSAMAX [Concomitant]

REACTIONS (3)
  - ATRIAL FIBRILLATION [None]
  - MALAISE [None]
  - ORTHOSTATIC HYPOTENSION [None]
